FAERS Safety Report 24983845 (Version 1)
Quarter: 2025Q1

REPORT INFORMATION
  Report Type: Spontaneous
  Country: US (occurrence: US)
  Receive Date: 20250219
  Receipt Date: 20250219
  Transmission Date: 20250408
  Serious: No
  Sender: ROCHE
  Company Number: US-ROCHE-10000208836

PATIENT
  Age: 54 Year
  Sex: Female

DRUGS (13)
  1. XOLAIR PFS [Suspect]
     Active Substance: OMALIZUMAB
     Indication: Asthma
     Dosage: STRENGTH: 150MG/ML
     Route: 058
  2. XOLAIR PFS [Suspect]
     Active Substance: OMALIZUMAB
  3. ADVAIR DISKU AEP 250-50MC [Concomitant]
  4. ALBUTEROL SU AER 108 (90, BUDESONIDE SUS 0.5MG/2ML [Concomitant]
  5. SPIRIVA RESP AER 2.5MCG/A [Concomitant]
  6. ATORVASTATIN [Concomitant]
     Active Substance: ATORVASTATIN
  7. CETIRIZINE H  TAB 10MG [Concomitant]
  8. DOXAZOSIN ME TAB 4MG [Concomitant]
  9. ENTRESTO [Concomitant]
     Active Substance: SACUBITRIL\VALSARTAN
  10. LOSARTAN POTASSIUM [Concomitant]
     Active Substance: LOSARTAN POTASSIUM
  11. SPIRONOLACTO TAB 25MG [Concomitant]
  12. VICTOZA SOP 18MG/3ML [Concomitant]
  13. XARELTO [Concomitant]
     Active Substance: RIVAROXABAN

REACTIONS (3)
  - Influenza [Not Recovered/Not Resolved]
  - Dyspnoea [Not Recovered/Not Resolved]
  - Asthma [Not Recovered/Not Resolved]

NARRATIVE: CASE EVENT DATE: 20241201
